FAERS Safety Report 4788276-2 (Version None)
Quarter: 2005Q4

REPORT INFORMATION
  Report Type: 
  Country: None (occurrence: None)
  Receive Date: 20051003
  Receipt Date: 20050918
  Transmission Date: 20060501
  Serious: Yes (Hospitalization)
  Sender: FDA-Public Use
  Company Number: 200506IM000269

PATIENT
  Age: 51 Year
  Sex: Female
  Weight: 64.8644 kg

DRUGS (9)
  1. INFERGEN [Suspect]
     Indication: HEPATITIS C
     Dosage: SEE IMAGE, SUBCUTANEOUS
     Route: 058
     Dates: start: 20050502, end: 20050802
  2. INFERGEN [Suspect]
     Indication: HEPATITIS C
     Dosage: SEE IMAGE, SUBCUTANEOUS
     Route: 058
     Dates: start: 20050803, end: 20050822
  3. INFERGEN [Suspect]
  4. RIBAVIRIN [Concomitant]
  5. HYDROCHLOROTHIAZIDE [Concomitant]
  6. METOPROLOL [Concomitant]
  7. PROMETHAZINE [Concomitant]
  8. MECLIZINE [Concomitant]
  9. TRAMADOL HCL [Concomitant]

REACTIONS (13)
  - ASTHENIA [None]
  - BLOOD COUNT ABNORMAL [None]
  - CONDITION AGGRAVATED [None]
  - DIZZINESS [None]
  - DRUG INEFFECTIVE [None]
  - FLUID RETENTION [None]
  - HEADACHE [None]
  - HYPOTRICHOSIS [None]
  - MALAISE [None]
  - NAUSEA [None]
  - OEDEMA PERIPHERAL [None]
  - RED BLOOD CELL COUNT DECREASED [None]
  - WEIGHT INCREASED [None]
